FAERS Safety Report 5758722-6 (Version None)
Quarter: 2008Q2

REPORT INFORMATION
  Report Type: 
  Country: None (occurrence: None)
  Receive Date: 20080602
  Receipt Date: 20080519
  Transmission Date: 20081010
  Serious: Yes (Other)
  Sender: FDA-Public Use
  Company Number: B0522619A

PATIENT
  Age: 54 Year
  Sex: Female

DRUGS (6)
  1. AMOXICILLIN TRIHYDRATE + POTASSIUM CALVULANATE (FORMULATION (AMOX. TRI [Suspect]
     Indication: SKIN INFECTION
     Dosage: ORAL
     Route: 048
  2. PHENOXYMETHYL PENICILLIN [Suspect]
  3. AMOXIL [Suspect]
  4. CLAVULANIC ACID (FORMULATION UNKNOWN) [Suspect]
  5. CORTICOSTEROID [Concomitant]
  6. BETA AGONIST [Concomitant]

REACTIONS (13)
  - ABDOMINAL PAIN [None]
  - AMNESIA [None]
  - ANAPHYLACTIC SHOCK [None]
  - ASTHMA [None]
  - BLOOD IMMUNOGLOBULIN E INCREASED [None]
  - BRONCHOSPASM [None]
  - CIRCULATORY COLLAPSE [None]
  - CONJUNCTIVITIS [None]
  - DERMATITIS EXFOLIATIVE [None]
  - DYSPNOEA [None]
  - MALAISE [None]
  - RASH MORBILLIFORM [None]
  - TRYPTASE INCREASED [None]
